FAERS Safety Report 6439886-8 (Version None)
Quarter: 2009Q4

REPORT INFORMATION
  Report Type: 
  Country: None (occurrence: None)
  Receive Date: 20091113
  Receipt Date: 20091102
  Transmission Date: 20100525
  Serious: Yes (Other)
  Sender: FDA-Public Use
  Company Number: GB-PFIZER INC-2009199087

PATIENT
  Age: 56 Year
  Sex: Female

DRUGS (8)
  1. CHAMPIX [Suspect]
     Dosage: 1 MG, 2X/DAY
     Route: 048
     Dates: start: 20090313, end: 20090325
  2. AMLODIPINE BESILATE [Concomitant]
  3. ACETYLSALICYLIC ACID [Concomitant]
  4. ATORVASTATIN CALCIUM [Concomitant]
  5. ISOSORBIDE DINITRATE [Concomitant]
  6. PROZAC [Concomitant]
  7. LEVOTHYROXINE SODIUM [Concomitant]
  8. TRAMADOL HYDROCHLORIDE [Concomitant]

REACTIONS (3)
  - ABNORMAL BEHAVIOUR [None]
  - AFFECT LABILITY [None]
  - SUICIDAL IDEATION [None]
